FAERS Safety Report 13144248 (Version 1)
Quarter: 2017Q1

REPORT INFORMATION
  Report Type: Spontaneous
  Country: US (occurrence: US)
  Receive Date: 20170124
  Receipt Date: 20170124
  Transmission Date: 20170428
  Serious: Yes (Death)
  Sender: FDA-Public Use
  Company Number: US-PFIZER INC-2017029051

PATIENT
  Age: 43 Year
  Sex: Female

DRUGS (6)
  1. TRAMADOL. [Suspect]
     Active Substance: TRAMADOL
     Dosage: UNK
     Route: 048
  2. PREGABALIN. [Suspect]
     Active Substance: PREGABALIN
     Dosage: UNK
     Route: 048
  3. ALPRAZOLAM. [Suspect]
     Active Substance: ALPRAZOLAM
     Dosage: UNK
     Route: 048
  4. FLUVOXAMINE [Suspect]
     Active Substance: FLUVOXAMINE
     Dosage: UNK
     Route: 048
  5. SERTRALINE HCL [Suspect]
     Active Substance: SERTRALINE HYDROCHLORIDE
     Dosage: UNK
     Route: 048
  6. CARISOPRODOL. [Suspect]
     Active Substance: CARISOPRODOL
     Dosage: UNK
     Route: 048

REACTIONS (1)
  - Completed suicide [Fatal]

NARRATIVE: CASE EVENT DATE: 2015
